FAERS Safety Report 7495204-8 (Version None)
Quarter: 2011Q2

REPORT INFORMATION
  Report Type: 
  Country: None (occurrence: None)
  Receive Date: 20110520
  Receipt Date: 20101118
  Transmission Date: 20111010
  Serious: Yes (Death, Hospitalization)
  Sender: FDA-Public Use
  Company Number: FR-ASTRAZENECA-2010SE55624

PATIENT
  Age: 30392 Day
  Sex: Female

DRUGS (7)
  1. CORDARONE [Suspect]
     Route: 048
     Dates: start: 20090401, end: 20101031
  2. PULMICORT [Suspect]
     Route: 055
  3. RAMIPRIL [Suspect]
     Route: 048
  4. LEVOTHYROXINE SODIUM [Suspect]
     Route: 048
  5. LASIX [Suspect]
     Route: 048
     Dates: start: 20090401, end: 20101015
  6. PREVISCAN [Suspect]
     Route: 048
  7. LASIX [Suspect]
     Route: 048
     Dates: start: 20101015, end: 20101031

REACTIONS (3)
  - DEATH [None]
  - HYPOXIA [None]
  - INTERSTITIAL LUNG DISEASE [None]
